FAERS Safety Report 14602799 (Version 2)
Quarter: 2019Q2

REPORT INFORMATION
  Report Type: Report from Study
  Country: US (occurrence: US)
  Receive Date: 20180306
  Receipt Date: 20190620
  Transmission Date: 20190711
  Serious: Yes (Hospitalization)
  Sender: FDA-Public Use
  Company Number: PHEH2018US007299

PATIENT
  Sex: Female

DRUGS (1)
  1. SANDIMMUNE [Suspect]
     Active Substance: CYCLOSPORINE
     Indication: PRODUCT USED FOR UNKNOWN INDICATION
     Dosage: UNK
     Route: 065

REACTIONS (9)
  - Hypoacusis [Unknown]
  - Ear infection [Unknown]
  - Weight decreased [Unknown]
  - Decreased appetite [Unknown]
  - Pruritus [Unknown]
  - Fall [Unknown]
  - Skin discolouration [Unknown]
  - Pain [Unknown]
  - Skin infection [Unknown]
